FAERS Safety Report 10510934 (Version 1)
Quarter: 2014Q4

REPORT INFORMATION
  Report Type: Spontaneous
  Country: US (occurrence: US)
  Receive Date: 20141010
  Receipt Date: 20141010
  Transmission Date: 20150528
  Serious: Yes (Other)
  Sender: FDA-Public Use
  Company Number: US-SHIRE-US201406554

PATIENT
  Age: 50 Year
  Sex: Female
  Weight: 136.96 kg

DRUGS (19)
  1. TOPIRAMATE. [Concomitant]
     Active Substance: TOPIRAMATE
     Indication: FIBROMYALGIA
     Dosage: 100 MG, 2X/DAY:BID
     Route: 048
     Dates: start: 2010
  2. MECLIZINE [Concomitant]
     Active Substance: MECLIZINE\MECLIZINE HYDROCHLORIDE
     Indication: MITRAL VALVE PROLAPSE
     Dosage: 25 MG, 3X/DAY:TID, PRN
     Route: 048
     Dates: start: 2009
  3. TYLENOL WITH CODEINE [Concomitant]
     Active Substance: ACETAMINOPHEN\CODEINE PHOSPHATE
     Indication: FIBROMYALGIA
     Dosage: UNK, UNKNOWN
     Route: 048
  4. AMITRIPTYLINE HCL [Concomitant]
     Active Substance: AMITRIPTYLINE
     Indication: SLEEP DISORDER
     Dosage: 50 MG, 1X/DAY:QD, EVERY NIGHT
     Route: 048
  5. DULOXETINE DRLA [Concomitant]
     Indication: FIBROMYALGIA
     Dosage: 60 ?G, 1X/DAY:QD
     Route: 048
     Dates: start: 2006
  6. ATENOLOL. [Concomitant]
     Active Substance: ATENOLOL
     Indication: MITRAL VALVE PROLAPSE
     Dosage: 50 MG, 1X/DAY:QD, IN PM
     Route: 048
     Dates: start: 2009
  7. SYNTHROID [Concomitant]
     Active Substance: LEVOTHYROXINE SODIUM
     Indication: HYPOTHYROIDISM
     Dosage: 112 MG, 1X/DAY:QD
     Route: 048
     Dates: start: 2009
  8. SIMVASTATIN. [Concomitant]
     Active Substance: SIMVASTATIN
     Indication: BLOOD CHOLESTEROL INCREASED
     Dosage: 40 MG, 1X/DAY:QD
     Route: 048
     Dates: start: 2010
  9. CYCLOBENZAPRINE [Concomitant]
     Active Substance: CYCLOBENZAPRINE
     Indication: BACK PAIN
     Dosage: 10 MG, 3X/DAY:TID
     Route: 048
  10. DULOXETINE DRLA [Concomitant]
     Dosage: 30 ?G, 1X/DAY:QD
     Route: 048
     Dates: start: 20140722
  11. ROPINIROLE. [Concomitant]
     Active Substance: ROPINIROLE
     Indication: RESTLESS LEGS SYNDROME
     Dosage: 3 MG, 1X/DAY:QD, AT NIGHT
     Route: 048
     Dates: start: 2010
  12. OXYCODONE AND ACETAMINOPHEN [Concomitant]
     Active Substance: ACETAMINOPHEN\OXYCODONE\OXYCODONE HYDROCHLORIDE
     Indication: FIBROMYALGIA
     Dosage: 325 MG, 3X/DAY:TID (PRN)
     Route: 048
  13. RIBOFLAVIN [Concomitant]
     Active Substance: RIBOFLAVIN
     Indication: MIGRAINE
     Dosage: 100 MG, 2X/DAY:BID
     Route: 048
     Dates: start: 2014, end: 2014
  14. OXYCODONE AND ACETAMINOPHEN [Concomitant]
     Active Substance: ACETAMINOPHEN\OXYCODONE\OXYCODONE HYDROCHLORIDE
     Indication: ARTHRITIS
  15. VYVANSE [Suspect]
     Active Substance: LISDEXAMFETAMINE DIMESYLATE
     Indication: FATIGUE
     Dosage: 70 MG, 1X/DAY:QD
     Route: 048
     Dates: end: 201409
  16. HYDROCODONE [Concomitant]
     Active Substance: HYDROCODONE
     Indication: FIBROMYALGIA
     Dosage: UNK, AS REQ^D
     Route: 048
  17. EXTRA STRENGTH TYLENOL BACK PAIN [Concomitant]
     Indication: MIGRAINE
     Dosage: 1000 MG, 3X/DAY:TID, PRN
     Route: 048
  18. TROKENDI [Concomitant]
     Indication: MIGRAINE
     Dosage: 200 MG, 1X/DAY:QD (2 CAPSULES IN AM)
     Route: 048
     Dates: start: 2013, end: 2014
  19. MAGNESIUM [Concomitant]
     Active Substance: MAGNESIUM
     Indication: MIGRAINE
     Dosage: 200 MG, 2X/DAY:BID
     Route: 048
     Dates: start: 2014, end: 2014

REACTIONS (8)
  - Amphetamines negative [Recovered/Resolved]
  - Product use issue [Recovered/Resolved]
  - Disturbance in attention [Not Recovered/Not Resolved]
  - Weight increased [Unknown]
  - Dyspnoea [Not Recovered/Not Resolved]
  - Headache [Recovering/Resolving]
  - Drug withdrawal syndrome [Recovering/Resolving]
  - Wrong technique in drug usage process [Recovered/Resolved]

NARRATIVE: CASE EVENT DATE: 201409
